FAERS Safety Report 5866865-1 (Version None)
Quarter: 2008Q3

REPORT INFORMATION
  Report Type: 
  Country: None (occurrence: None)
  Receive Date: 20080902
  Receipt Date: 20080829
  Transmission Date: 20090109
  Serious: Yes (Hospitalization)
  Sender: FDA-Public Use
  Company Number: DE-WYE-G02085108

PATIENT
  Sex: Male
  Weight: 130 kg

DRUGS (6)
  1. TREVILOR RETARD [Suspect]
     Dosage: MAX. 150 CAPSULES (OVERDOSE AMOUNT MAX. 11250 MG)
     Route: 048
     Dates: start: 20080829, end: 20080829
  2. ZOLPIDEM [Suspect]
     Dosage: MAX. 20 TABLETS (OVERDOSE AMOUNT MAX. 200 MG)
     Route: 048
     Dates: start: 20080829, end: 20080829
  3. MIRTAZAPINE [Suspect]
     Dosage: MAX. 16 TABLETS (OVERDOSE AMOUNT MAX. 480 MG)
     Route: 048
     Dates: start: 20080829, end: 20080829
  4. TRIAMTERENE AND HYDROCHLOROTHIAZIDE [Suspect]
     Dosage: MAX. 66 TABLETS (OVERDOSE AMOUNT MAX. 3300 MG TRIAMTERENE/1650 MG HYDROCHLOROTHIAZIDE)
     Route: 048
     Dates: start: 20080829, end: 20080829
  5. BLOPRESS [Suspect]
     Dosage: MAX. 70 TABLETS OF BLOPRESS 16 MG PLUS 12.5 MG (OVERDOSE AMOUNT MAX. 1120 MG CANDESARTAN CILEXETIL)
     Route: 048
     Dates: start: 20080829, end: 20080829
  6. HYDROCHLOROTHIAZIDE [Suspect]
     Dosage: MAX. 70 TABLETS OF BLOPRESS 16 MG PLUS 12.5 MG (OVERDOSE AMOUNT MAX. 875 MG HYDROCHLOROTHIAZIDE)
     Route: 048
     Dates: start: 20080829, end: 20080829

REACTIONS (9)
  - APATHY [None]
  - BLOOD CREATINE PHOSPHOKINASE INCREASED [None]
  - BLOOD CREATININE INCREASED [None]
  - BLOOD SODIUM DECREASED [None]
  - INTENTIONAL OVERDOSE [None]
  - MYDRIASIS [None]
  - RENAL FAILURE [None]
  - RESPIRATORY DEPRESSION [None]
  - SUICIDE ATTEMPT [None]
